FAERS Safety Report 18335984 (Version 5)
Quarter: 2020Q4

REPORT INFORMATION
  Report Type: Spontaneous
  Country: US (occurrence: US)
  Receive Date: 20201001
  Receipt Date: 20201020
  Transmission Date: 20210113
  Serious: No
  Sender: FDA-Public Use
  Company Number: US-PFIZER INC-2020374019

PATIENT
  Age: 40 Year
  Sex: Female
  Weight: 49.9 kg

DRUGS (1)
  1. ESTRING [Suspect]
     Active Substance: ESTRADIOL
     Indication: HORMONE REPLACEMENT THERAPY
     Dosage: UNK

REACTIONS (3)
  - Product odour abnormal [Unknown]
  - Poor quality device used [Unknown]
  - Nausea [Unknown]

NARRATIVE: CASE EVENT DATE: 20200929
